FAERS Safety Report 5598265-6 (Version None)
Quarter: 2007Q4

REPORT INFORMATION
  Report Type: 
  Country: None (occurrence: None)
  Receive Date: 20071226
  Receipt Date: 20070929
  Transmission Date: 20080405
  Serious: No
  Sender: FDA-Public Use
  Company Number: 2007PV033512

PATIENT
  Age: 54 Year
  Sex: Male
  Weight: 122.4712 kg

DRUGS (5)
  1. SYMLIN [Suspect]
     Indication: TYPE 2 DIABETES MELLITUS
     Dosage: 60 MCG;TID;SC;90 MCG;TID;SC
     Route: 058
     Dates: start: 20070917, end: 20070901
  2. SYMLIN [Suspect]
     Indication: TYPE 2 DIABETES MELLITUS
     Dosage: 60 MCG;TID;SC;90 MCG;TID;SC
     Route: 058
     Dates: start: 20070901, end: 20070925
  3. SYMLIN [Suspect]
     Indication: TYPE 2 DIABETES MELLITUS
     Dosage: 60 MCG;TID;SC;90 MCG;TID;SC
     Route: 058
     Dates: start: 20070927
  4. HUMULIN R [Concomitant]
  5. LANTUS [Concomitant]

REACTIONS (2)
  - DIARRHOEA [None]
  - VOMITING [None]
